FAERS Safety Report 19382242 (Version 6)
Quarter: 2024Q1

REPORT INFORMATION
  Report Type: Report from Study
  Country: JP (occurrence: JP)
  Receive Date: 20210607
  Receipt Date: 20240206
  Transmission Date: 20240410
  Serious: Yes (Hospitalization)
  Sender: FDA-Public Use
  Company Number: JP-NIPPON SHINYAKU-NIP-2021-000022

PATIENT

DRUGS (10)
  1. VILTEPSO [Suspect]
     Active Substance: VILTOLARSEN
     Indication: Duchenne muscular dystrophy
     Dosage: 80 MG/KG, QWK
     Route: 041
     Dates: start: 20201119
  2. PREDNISOLONE [Concomitant]
     Active Substance: PREDNISOLONE
     Indication: Duchenne muscular dystrophy
     Dosage: 9 MG
     Route: 065
  3. VIMPAT [Concomitant]
     Active Substance: LACOSAMIDE
     Indication: Product used for unknown indication
     Dosage: 240 MG
     Route: 065
  4. ENALAPRIL MALEATE [Concomitant]
     Active Substance: ENALAPRIL MALEATE
     Indication: Prophylaxis
     Dosage: 2.5 MG
     Route: 065
  5. ABILIFY [Concomitant]
     Active Substance: ARIPIPRAZOLE
     Indication: Product used for unknown indication
     Dosage: 3 MG
     Route: 065
  6. LEVETIRACETAM [Concomitant]
     Active Substance: LEVETIRACETAM
     Indication: Product used for unknown indication
     Dosage: 400 MG
     Route: 065
     Dates: end: 20201209
  7. LEVETIRACETAM [Concomitant]
     Active Substance: LEVETIRACETAM
     Dosage: 200 MG
     Route: 065
     Dates: start: 20201210, end: 20210114
  8. CEFAZOLIN SODIUM [Concomitant]
     Active Substance: CEFAZOLIN SODIUM
     Indication: Device related sepsis
     Dosage: 1000 MG
     Route: 065
     Dates: start: 20210204, end: 20210212
  9. CEFAZOLIN SODIUM [Concomitant]
     Active Substance: CEFAZOLIN SODIUM
     Dosage: 2250 MG
     Route: 065
     Dates: start: 20210416, end: 20210430
  10. VANCOMYCIN [Concomitant]
     Active Substance: VANCOMYCIN
     Indication: Device related sepsis
     Dosage: 1 GRAM
     Dates: start: 20210129, end: 20210131

REACTIONS (3)
  - Device related sepsis [Recovered/Resolved]
  - Device related sepsis [Recovered/Resolved]
  - Gait disturbance [Not Recovered/Not Resolved]

NARRATIVE: CASE EVENT DATE: 20210127
